FAERS Safety Report 7767067-4 (Version None)
Quarter: 2011Q3

REPORT INFORMATION
  Report Type: 
  Country: None (occurrence: None)
  Receive Date: 20110922
  Receipt Date: 20101112
  Transmission Date: 20111222
  Serious: No
  Sender: FDA-Public Use
  Company Number: US-ASTRAZENECA-2010SE54348

PATIENT
  Age: 53 Year
  Sex: Female
  Weight: 70.3 kg

DRUGS (4)
  1. SEROQUEL [Suspect]
     Route: 048
     Dates: start: 20100901
  2. SEROQUEL [Suspect]
     Indication: BIPOLAR DISORDER
     Dosage: 200-300 MG DAILY
     Route: 048
     Dates: start: 20010101, end: 20070101
  3. SEROQUEL [Suspect]
     Route: 048
     Dates: start: 20070101, end: 20100901
  4. RISPERIDONE [Concomitant]

REACTIONS (2)
  - MANIA [None]
  - HALLUCINATION, AUDITORY [None]
